FAERS Safety Report 8500837 (Version 4)
Quarter: 2012Q4

REPORT INFORMATION
  Report Type: Report from Study
  Country: JP (occurrence: JP)
  Receive Date: 20120410
  Receipt Date: 20121211
  Transmission Date: 20130627
  Serious: Yes (Hospitalization)
  Sender: FDA-Public Use
  Company Number: JP-VERTEX PHARMACEUTICALS INC.-AE-2012-004896

PATIENT
  Age: 70 Year
  Sex: Female

DRUGS (7)
  1. VX-950 (TELAPREVIR) [Suspect]
     Indication: CHRONIC HEPATITIS C
     Dosage: 1500 mg, qd
     Route: 048
     Dates: start: 20120326, end: 20120403
  2. PEGINTRON                          /01543001/ [Suspect]
     Indication: CHRONIC HEPATITIS C
     Dosage: 1.3 ?g/kg, qw
     Route: 058
     Dates: start: 20120326, end: 20120326
  3. PEGINTRON                          /01543001/ [Suspect]
     Dosage: 0.6 ?g/kg, qw
     Route: 058
     Dates: start: 20120402, end: 20120402
  4. REBETOL [Suspect]
     Indication: CHRONIC HEPATITIS C
     Dosage: 600 mg, qd
     Route: 048
     Dates: start: 20120326, end: 20120328
  5. REBETOL [Suspect]
     Dosage: 400 mg, qd
     Route: 048
     Dates: start: 20120329, end: 20120403
  6. AMLODIN [Concomitant]
     Dosage: 5 mg, qd
     Route: 048
     Dates: end: 20120328
  7. DEPAS [Concomitant]
     Dosage: 0.5 mg, qd
     Route: 048

REACTIONS (2)
  - Renal impairment [Recovered/Resolved]
  - Platelet count decreased [Recovered/Resolved]
